FAERS Safety Report 17137267 (Version 1)
Quarter: 2019Q4

REPORT INFORMATION
  Report Type: Spontaneous
  Country: GB (occurrence: GB)
  Receive Date: 20191210
  Receipt Date: 20191210
  Transmission Date: 20200122
  Serious: Yes (Disabling)
  Sender: FDA-Public Use
  Company Number: GB-SAMSUNG BIOEPIS-SB-2019-36269

PATIENT
  Age: 59 Year
  Sex: Female
  Weight: 63.5 kg

DRUGS (1)
  1. IMRALDI [Suspect]
     Active Substance: ADALIMUMAB
     Indication: RHEUMATOID ARTHRITIS
     Route: 058
     Dates: start: 20190418, end: 20190603

REACTIONS (9)
  - Tinnitus [Unknown]
  - Rash [Not Recovered/Not Resolved]
  - Dry skin [Unknown]
  - Abdominal pain upper [Unknown]
  - Rheumatoid arthritis [Unknown]
  - Headache [Unknown]
  - Product substitution issue [Unknown]
  - Erythema [Unknown]
  - Blood pressure increased [Unknown]

NARRATIVE: CASE EVENT DATE: 20190418
